FAERS Safety Report 7467451-2 (Version None)
Quarter: 2011Q2

REPORT INFORMATION
  Report Type: 
  Country: None (occurrence: None)
  Receive Date: 20110509
  Receipt Date: 20110429
  Transmission Date: 20111010
  Serious: Yes (Hospitalization)
  Sender: FDA-Public Use
  Company Number: US-ASTRAZENECA-2011SE24796

PATIENT
  Age: 56 Year
  Sex: Female
  Weight: 88.9 kg

DRUGS (11)
  1. SEROQUEL XR [Suspect]
     Indication: BIPOLAR DISORDER
     Route: 048
  2. DOXEPIN [Concomitant]
     Indication: INSOMNIA
  3. ZOLOFT [Concomitant]
     Indication: DEPRESSION
     Dosage: 50 MG DAILY
  4. CLONAZEPAM [Concomitant]
     Indication: ANXIETY
  5. ACETAMINOPHEN AND HYDROCODONE BITARTRATE [Concomitant]
     Indication: PAIN
     Dosage: 1-2 TABS AS REQUIRED
  6. GABAPENTIN [Concomitant]
     Indication: PAIN
     Dosage: 800 MG BID
  7. LEVOXYL [Concomitant]
     Indication: THYROID DISORDER
     Dosage: 25 MG DAILY
  8. ZOPANEX HFA [Concomitant]
     Indication: LUNG DISORDER
     Dosage: 45 MCG 2PUFFS TID
  9. OXYCONTIN [Concomitant]
     Indication: PAIN
     Dosage: 40 MG AS REQUIRED
  10. ADVAIR DISKUS 100/50 [Concomitant]
     Indication: LUNG DISORDER
     Dosage: 250/50 BID
  11. SPIRIVA [Concomitant]
     Indication: LUNG DISORDER

REACTIONS (9)
  - FALL [None]
  - WEIGHT DECREASED [None]
  - MEMORY IMPAIRMENT [None]
  - DRUG DOSE OMISSION [None]
  - PANIC ATTACK [None]
  - PULMONARY HYPERTENSION [None]
  - INSOMNIA [None]
  - OXYGEN SATURATION DECREASED [None]
  - HEAD INJURY [None]
